FAERS Safety Report 24589079 (Version 1)
Quarter: 2024Q4

REPORT INFORMATION
  Report Type: Spontaneous
  Country: GB (occurrence: GB)
  Receive Date: 20241107
  Receipt Date: 20241107
  Transmission Date: 20250115
  Serious: Yes (Other)
  Sender: ORGANON
  Company Number: None

PATIENT

DRUGS (1)
  1. MIRTAZAPINE [Suspect]
     Active Substance: MIRTAZAPINE
     Dosage: UNK
     Dates: end: 20241105

REACTIONS (3)
  - Sleep paralysis [Recovering/Resolving]
  - Restless legs syndrome [Recovering/Resolving]
  - Food craving [Recovering/Resolving]
